FAERS Safety Report 6341149-6 (Version None)
Quarter: 2009Q3

REPORT INFORMATION
  Report Type: 
  Country: None (occurrence: None)
  Receive Date: 20090904
  Receipt Date: 20090529
  Transmission Date: 20100115
  Serious: Yes (Other)
  Sender: FDA-Public Use
  Company Number: A0769497A

PATIENT
  Age: 75 Year
  Sex: Male

DRUGS (3)
  1. REQUIP XL [Suspect]
     Indication: PARKINSON'S DISEASE
     Dosage: 2MG PER DAY
     Route: 048
     Dates: start: 20090210, end: 20090215
  2. ASPIRIN [Concomitant]
  3. TOPROL-XL [Concomitant]

REACTIONS (1)
  - HALLUCINATION [None]
